FAERS Safety Report 9442360 (Version 1)
Quarter: 2013Q3

REPORT INFORMATION
  Report Type: Spontaneous
  Country: US (occurrence: US)
  Receive Date: 20130806
  Receipt Date: 20130806
  Transmission Date: 20140515
  Serious: No
  Sender: FDA-Public Use
  Company Number: US-GLAXOSMITHKLINE-A1011310A

PATIENT
  Age: 54 Year
  Sex: Female

DRUGS (1)
  1. ADVAIR [Suspect]
     Route: 055
     Dates: start: 20121109

REACTIONS (3)
  - Dyspnoea [Unknown]
  - Underdose [Unknown]
  - Treatment noncompliance [Unknown]
